FAERS Safety Report 18421472 (Version 3)
Quarter: 2020Q4

REPORT INFORMATION
  Report Type: Spontaneous
  Country: DE (occurrence: DE)
  Receive Date: 20201023
  Receipt Date: 20201127
  Transmission Date: 20210114
  Serious: Yes (Death)
  Sender: FDA-Public Use
  Company Number: NVSC2020DE283659

PATIENT

DRUGS (21)
  1. PREDNISOLONE. [Suspect]
     Active Substance: PREDNISOLONE
     Dosage: 3 MG ICV (CYCLE 5; 1 CYCLE = 2 WEEKS; DAYS 2-4) WITH MTX
     Route: 065
  2. SULFAMETHOXAZOLE,TRIMETHOPRIM [Suspect]
     Active Substance: SULFAMETHOXAZOLE\TRIMETHOPRIM
     Indication: PROPHYLAXIS
     Dosage: UNK, CYCLIC
     Route: 065
  3. ARA-C [Suspect]
     Active Substance: CYTARABINE
     Dosage: 10 MG (CYCLE 4+6; 1 CYCLE = 3 WEEKS; DAY 6)UNK
     Route: 065
  4. G-CSF [Suspect]
     Active Substance: GRANULOCYTE COLONY-STIMULATING FACTOR NOS
     Indication: PROPHYLAXIS
     Dosage: UNK, CYCLIC
     Route: 065
  5. CYTARABINE. [Suspect]
     Active Substance: CYTARABINE
     Indication: CENTRAL NERVOUS SYSTEM LYMPHOMA
     Dosage: 3000 MG/M2 (BODY-SURFACE AREA)
     Route: 041
  6. METHOTREXATE. [Suspect]
     Active Substance: METHOTREXATE
     Dosage: 4000 MG/M2 (CYCLE 1-3; 1 CYCLE = 2 WEEKS; DAY 1)UNK
     Route: 042
  7. IFOSFAMIDE. [Suspect]
     Active Substance: IFOSFAMIDE
     Indication: CENTRAL NERVOUS SYSTEM LYMPHOMA
     Dosage: 800 MG/M2 (WITH SODIUM 2-MERCAPTOETHANE SULFONATE PROTECTION)
     Route: 041
  8. IFOSFAMIDE. [Suspect]
     Active Substance: IFOSFAMIDE
     Dosage: 800 MG/M2 (CYCLE 5; 1 CYCLE = 2 WEEKS; DAYS 2-4)UNK
     Route: 042
  9. METHOTREXATE. [Suspect]
     Active Substance: METHOTREXATE
     Dosage: 2.5 MG (CYCLE 5; 1 CYCLE = 2 WEEKS; DAYS 2-4) WITH PREDNISOLONE
     Route: 065
  10. IFOSFAMIDE. [Suspect]
     Active Substance: IFOSFAMIDE
     Dosage: 800 MG/M2 (CYCLE 1-3; 1 CYCLE = 2 WEEKS; DAYS 2-4)
     Route: 042
  11. METHOTREXATE. [Suspect]
     Active Substance: METHOTREXATE
     Indication: CENTRAL NERVOUS SYSTEM LYMPHOMA
     Dosage: UNK, SYSTEMIC (INDUCTION THERAPY)
     Route: 041
  12. METHOTREXATE. [Suspect]
     Active Substance: METHOTREXATE
     Dosage: 2.5 MG(CYCLE 4+6; 1 CYCLE = 3 WEEKS; DAYS 3-5) WITH PREDNISOLONE
     Route: 065
  13. PREDNISOLONE. [Suspect]
     Active Substance: PREDNISOLONE
     Indication: CENTRAL NERVOUS SYSTEM LYMPHOMA
     Dosage: UNK (CONSOLIDATION THERAPY)
     Route: 065
  14. ACICLOVIR [Suspect]
     Active Substance: ACYCLOVIR
     Indication: PROPHYLAXIS
     Dosage: UNK, CYCLIC
     Route: 065
  15. RITUXIMAB. [Suspect]
     Active Substance: RITUXIMAB
     Indication: CENTRAL NERVOUS SYSTEM LYMPHOMA
     Dosage: 375 MG/M2 (INDUCTION THERAPY)
     Route: 065
  16. RITUXIMAB. [Suspect]
     Active Substance: RITUXIMAB
     Dosage: 375 MG/M2 (CYCLE 1-3; 1 CYCLE = 2 WEEKS; DAY 0)UNK
     Route: 042
  17. PREDNISOLONE. [Suspect]
     Active Substance: PREDNISOLONE
     Dosage: 3 MG ICV (CYCLE 4+6; 1 CYCLE = 3 WEEKS; DAYS 3-5) WITH MTX UNK
     Route: 065
  18. ARA-C [Suspect]
     Active Substance: CYTARABINE
     Indication: CENTRAL NERVOUS SYSTEM LYMPHOMA
     Dosage: 10 MG (CYCLE 5; 1 CYCLE = 2 WEEKS; DAY 5)
     Route: 065
  19. METHOTREXATE. [Suspect]
     Active Substance: METHOTREXATE
     Dosage: UNK (CONSOLIDATION THERAPY)
     Route: 065
  20. METHOTREXATE. [Suspect]
     Active Substance: METHOTREXATE
     Dosage: 4000 MG/M2 (CYCLE 5; 1 CYCLE = 2 WEEKS; DAY 1)UNK
     Route: 042
  21. ARA-C [Suspect]
     Active Substance: CYTARABINE
     Dosage: 3000 MG/M2 (CYCLE 4+6; 1 CYCLE = 3 WEEKS; DAYS 1-2)UNK
     Route: 042

REACTIONS (1)
  - Cardiac arrest [Fatal]
